FAERS Safety Report 7904619 (Version 5)
Quarter: 2013Q1

REPORT INFORMATION
  Report Type: Report from Study
  Country: AU (occurrence: AU)
  Receive Date: 20110419
  Receipt Date: 20130116
  Transmission Date: 20140127
  Serious: Yes (Death)
  Sender: FDA-Public Use
  Company Number: PHHO2011AU06659

PATIENT
  Age: 63 Year
  Sex: Male

DRUGS (4)
  1. AFINITOR [Suspect]
     Indication: RENAL CELL CARCINOMA
     Dosage: UNK
     Route: 048
     Dates: start: 20110128, end: 20110303
  2. SUNITINIB MALATE [Suspect]
     Indication: RENAL CELL CARCINOMA
     Dosage: UNK
     Route: 065
     Dates: start: 20100217, end: 20110407
  3. RAMIPRIL [Concomitant]
     Dosage: UNK
     Dates: start: 20100101
  4. AMOXICILLIN [Concomitant]
     Indication: PROPHYLAXIS
     Dosage: UNK
     Dates: start: 20101001

REACTIONS (3)
  - Cardiac failure congestive [Fatal]
  - Malignant neoplasm progression [Fatal]
  - Neoplasm progression [Fatal]
